FAERS Safety Report 8786115 (Version 3)
Quarter: 2014Q3

REPORT INFORMATION
  Report Type: Report from Study
  Country: US (occurrence: US)
  Receive Date: 20120914
  Receipt Date: 20140905
  Transmission Date: 20150326
  Serious: Yes (Death)
  Sender: FDA-Public Use
  Company Number: US-ROCHE-1127554

PATIENT
  Sex: Female
  Weight: 66 kg

DRUGS (3)
  1. VP-16 [Concomitant]
     Active Substance: ETOPOSIDE
  2. AVASTIN [Suspect]
     Active Substance: BEVACIZUMAB
     Indication: MALIGNANT NEOPLASM OF UTERINE ADNEXA
     Route: 065
  3. AVASTIN [Suspect]
     Active Substance: BEVACIZUMAB
     Indication: METASTASES TO LYMPH NODES

REACTIONS (2)
  - Renal cell carcinoma [Fatal]
  - Off label use [Unknown]
